FAERS Safety Report 8104656-1 (Version None)
Quarter: 2012Q1

REPORT INFORMATION
  Report Type: 
  Country: None (occurrence: None)
  Receive Date: 20120130
  Receipt Date: 20120124
  Transmission Date: 20120608
  Serious: Yes (Other)
  Sender: FDA-Public Use
  Company Number: PHHY2012AU006426

PATIENT
  Sex: Female

DRUGS (3)
  1. ZOLEDRONOC ACID [Suspect]
     Dosage: UNK UKN, UNK
     Route: 042
  2. ZOLEDRONOC ACID [Suspect]
     Dosage: 5 MG, UNK
     Route: 042
     Dates: start: 20110101
  3. ZOLEDRONOC ACID [Suspect]
     Dosage: UNK UKN, UNK
     Route: 042

REACTIONS (13)
  - ORAL PAIN [None]
  - LIP EXFOLIATION [None]
  - HYPERAESTHESIA [None]
  - PAIN IN EXTREMITY [None]
  - PATHOLOGICAL FRACTURE [None]
  - LYMPHADENOPATHY [None]
  - DEHYDRATION [None]
  - ORAL INFECTION [None]
  - CRYING [None]
  - BONE PAIN [None]
  - FEELING ABNORMAL [None]
  - LIP PAIN [None]
  - BURNING SENSATION [None]
